FAERS Safety Report 5203180-3 (Version None)
Quarter: 2006Q4

REPORT INFORMATION
  Report Type: 
  Country: None (occurrence: None)
  Receive Date: 20061027
  Receipt Date: 20060629
  Transmission Date: 20070319
  Serious: Yes (Other)
  Sender: FDA-Public Use
  Company Number: HQWYE542515AUG06

PATIENT
  Age: 59 Year
  Sex: Female

DRUGS (4)
  1. PREMARIN [Suspect]
  2. ACTIVELLA [Suspect]
  3. ESTRATEST H.S. [Suspect]
  4. MEDROXYPROGESTERONE ACETATE [Suspect]

REACTIONS (1)
  - BREAST CANCER [None]
